FAERS Safety Report 12308318 (Version 1)
Quarter: 2016Q2

REPORT INFORMATION
  Report Type: Spontaneous
  Country: US (occurrence: US)
  Receive Date: 20160426
  Receipt Date: 20160426
  Transmission Date: 20160815
  Serious: Yes (Other)
  Sender: FDA-Public Use
  Company Number: US-ASTRAZENECA-2016SE42302

PATIENT
  Age: 77 Year
  Sex: Female
  Weight: 87.1 kg

DRUGS (17)
  1. ALLEGRA OTC [Concomitant]
     Indication: MULTIPLE ALLERGIES
     Route: 048
  2. NEXIUM [Suspect]
     Active Substance: ESOMEPRAZOLE MAGNESIUM
     Indication: DYSPEPSIA
     Route: 048
     Dates: start: 2010
  3. CAPTOPRIL. [Concomitant]
     Active Substance: CAPTOPRIL
     Indication: BLOOD PRESSURE ABNORMAL
     Route: 048
  4. PLAVIX [Concomitant]
     Active Substance: CLOPIDOGREL BISULFATE
     Indication: TRANSIENT ISCHAEMIC ATTACK
     Route: 048
  5. FLONASE [Concomitant]
     Active Substance: FLUTICASONE PROPIONATE
     Indication: NASAL CONGESTION
     Route: 045
  6. CLIMARA [Concomitant]
     Active Substance: ESTRADIOL
     Indication: OESTROGEN THERAPY
     Route: 061
  7. NEXIUM [Suspect]
     Active Substance: ESOMEPRAZOLE MAGNESIUM
     Indication: GASTROINTESTINAL MELANOMA
     Route: 048
     Dates: start: 2010
  8. CAPTOPRIL. [Concomitant]
     Active Substance: CAPTOPRIL
     Indication: CARDIAC DISORDER
     Route: 048
  9. ASTEPRO [Concomitant]
     Active Substance: AZELASTINE HYDROCHLORIDE
     Indication: HYPERSENSITIVITY
     Route: 045
  10. ASMANEX [Concomitant]
     Active Substance: MOMETASONE FUROATE
     Indication: CHEST DISCOMFORT
     Route: 055
  11. ALLOPURINOL. [Concomitant]
     Active Substance: ALLOPURINOL
     Indication: GOUT
     Route: 048
  12. ATENOLOL. [Suspect]
     Active Substance: ATENOLOL
     Route: 048
  13. NEXIUM [Suspect]
     Active Substance: ESOMEPRAZOLE MAGNESIUM
     Indication: GASTROOESOPHAGEAL REFLUX DISEASE
     Route: 048
     Dates: start: 2010
  14. SINGULAIR [Concomitant]
     Active Substance: MONTELUKAST SODIUM
     Indication: PULMONARY CONGESTION
     Route: 048
  15. SPIRONOLACTONE. [Concomitant]
     Active Substance: SPIRONOLACTONE
     Indication: CARDIAC DISORDER
     Route: 048
  16. SPIRIVA [Concomitant]
     Active Substance: TIOTROPIUM BROMIDE MONOHYDRATE
     Indication: DYSPNOEA
     Route: 055
  17. CAPTOPRIL. [Concomitant]
     Active Substance: CAPTOPRIL
     Indication: FLUID IMBALANCE
     Route: 048

REACTIONS (11)
  - Off label use [Unknown]
  - Vision blurred [Unknown]
  - Gastrointestinal tract mucosal discolouration [Unknown]
  - Transient ischaemic attack [Unknown]
  - Dyspepsia [Unknown]
  - Product use issue [Unknown]
  - Gout [Unknown]
  - Renal cancer [Unknown]
  - Urinary tract infection [Unknown]
  - Gastrooesophageal reflux disease [Unknown]
  - Acoustic neuroma [Unknown]

NARRATIVE: CASE EVENT DATE: 2010
